FAERS Safety Report 17376968 (Version 5)
Quarter: 2020Q2

REPORT INFORMATION
  Report Type: Spontaneous
  Country: US (occurrence: US)
  Receive Date: 20200206
  Receipt Date: 20200507
  Transmission Date: 20200713
  Serious: No
  Sender: FDA-Public Use
  Company Number: US-PFIZER INC-2020048861

PATIENT
  Age: 71 Year
  Sex: Female

DRUGS (1)
  1. DETROL LA [Suspect]
     Active Substance: TOLTERODINE TARTRATE
     Dosage: 2 MG

REACTIONS (3)
  - Arthralgia [Not Recovered/Not Resolved]
  - Malaise [Unknown]
  - Joint injury [Not Recovered/Not Resolved]
